FAERS Safety Report 10673539 (Version 2)
Quarter: 2014Q4

REPORT INFORMATION
  Report Type: Spontaneous
  Country: DE (occurrence: DE)
  Receive Date: 20141224
  Receipt Date: 20141224
  Transmission Date: 20150529
  Serious: Yes (Death, Life-Threatening, Hospitalization, Other)
  Sender: FDA-Public Use
  Company Number: DE-009507513-1411DEU009653

PATIENT
  Age: 79 Year
  Sex: Male
  Weight: 175 kg

DRUGS (9)
  1. SINGULAIR [Suspect]
     Active Substance: MONTELUKAST SODIUM
     Indication: CHRONIC OBSTRUCTIVE PULMONARY DISEASE
  2. BERODUAL [Concomitant]
     Active Substance: FENOTEROL HYDROBROMIDE\IPRATROPIUM BROMIDE
     Indication: ASTHMA
     Dosage: UNK, PRN
     Dates: start: 201103
  3. BRETARIS GENUAIR [Concomitant]
     Indication: OSTEOPOROSIS
     Dosage: 322 MICROGRAM, UNK
     Dates: start: 201208
  4. SUMATRIPTAN. [Concomitant]
     Active Substance: SUMATRIPTAN
     Indication: MIGRAINE
     Dosage: 50 MG, PRN
     Dates: start: 201103
  5. BERODUAL [Concomitant]
     Active Substance: FENOTEROL HYDROBROMIDE\IPRATROPIUM BROMIDE
     Indication: CHRONIC OBSTRUCTIVE PULMONARY DISEASE
  6. ATMADISC [Concomitant]
     Active Substance: FLUTICASONE PROPIONATE\SALMETEROL XINAFOATE
     Indication: ASTHMA
     Dosage: 50/250 (UNITS NOT PROVIEDED), BID
     Dates: start: 201103
  7. DEKRISTOL [Concomitant]
     Active Substance: CHOLECALCIFEROL
     Indication: OSTEOPOROSIS
     Dosage: 20000 DF, WEEKLY
  8. SINGULAIR [Suspect]
     Active Substance: MONTELUKAST SODIUM
     Indication: ASTHMA
     Dosage: 10 MG, DAILY
     Route: 048
     Dates: start: 20120829, end: 201410
  9. ATMADISC [Concomitant]
     Active Substance: FLUTICASONE PROPIONATE\SALMETEROL XINAFOATE
     Indication: CHRONIC OBSTRUCTIVE PULMONARY DISEASE

REACTIONS (21)
  - Aphasia [Unknown]
  - Haemoglobin decreased [Unknown]
  - Haemothorax [Unknown]
  - Hyponatraemia [Unknown]
  - Intraventricular haemorrhage [Unknown]
  - Hepatic haematoma [Unknown]
  - Headache [Unknown]
  - Cerebral haemorrhage [Unknown]
  - Hemiparesis [Unknown]
  - Hepatic haematoma [Unknown]
  - Blood pressure increased [Unknown]
  - Localised infection [Unknown]
  - Lung infiltration [Unknown]
  - Liver function test abnormal [Unknown]
  - Pneumonia [Unknown]
  - Haematoma evacuation [Unknown]
  - Cerebral haemorrhage [Fatal]
  - Lung infiltration [Unknown]
  - Transfusion [Unknown]
  - International normalised ratio increased [Unknown]
  - Emphysema [Unknown]

NARRATIVE: CASE EVENT DATE: 201404
